FAERS Safety Report 24416899 (Version 3)
Quarter: 2024Q4

REPORT INFORMATION
  Report Type: Spontaneous
  Country: US (occurrence: US)
  Receive Date: 20241009
  Receipt Date: 20241024
  Transmission Date: 20250115
  Serious: Yes (Hospitalization, Other)
  Sender: GILEAD
  Company Number: US-GILEAD-2024-0690369

PATIENT
  Age: 61 Year
  Sex: Female

DRUGS (14)
  1. YESCARTA [Suspect]
     Active Substance: AXICABTAGENE CILOLEUCEL
     Indication: Diffuse large B-cell lymphoma
     Dosage: UNK
     Route: 042
     Dates: start: 20230130, end: 20230130
  2. BENZONATATE [Concomitant]
     Active Substance: BENZONATATE
  3. CEFDINIR [Concomitant]
     Active Substance: CEFDINIR
  4. FLUCONAZOLE [Concomitant]
     Active Substance: FLUCONAZOLE
  5. GABAPENTIN [Concomitant]
     Active Substance: GABAPENTIN
  6. LOPERAMIDE [Concomitant]
     Active Substance: LOPERAMIDE
  7. NALOXONE [Concomitant]
     Active Substance: NALOXONE
  8. OMEPRAZOLE [Concomitant]
     Active Substance: OMEPRAZOLE
  9. POTASSIUM CHLORIDE [Concomitant]
     Active Substance: POTASSIUM CHLORIDE
  10. SERTRALINE [Concomitant]
     Active Substance: SERTRALINE HYDROCHLORIDE
  11. TEMAZEPAM [Concomitant]
     Active Substance: TEMAZEPAM
  12. TRAMADOL [Concomitant]
     Active Substance: TRAMADOL
  13. VALACYCLOVIR HYDROCHLORIDE [Concomitant]
     Active Substance: VALACYCLOVIR HYDROCHLORIDE
  14. VENCLEXTA [Concomitant]
     Active Substance: VENETOCLAX

REACTIONS (2)
  - Myelodysplastic syndrome [Recovering/Resolving]
  - Dehydration [Unknown]

NARRATIVE: CASE EVENT DATE: 20240913
